FAERS Safety Report 5837082-6 (Version None)
Quarter: 2008Q3

REPORT INFORMATION
  Report Type: 
  Country: None (occurrence: None)
  Receive Date: 20080807
  Receipt Date: 20071221
  Transmission Date: 20090109
  Serious: No
  Sender: FDA-Public Use
  Company Number: A0700272A

PATIENT
  Age: 50 Year
  Sex: Female

DRUGS (1)
  1. TAGAMET [Suspect]

REACTIONS (4)
  - ABDOMINAL DISCOMFORT [None]
  - ABDOMINAL DISTENSION [None]
  - DIZZINESS [None]
  - PREMENSTRUAL SYNDROME [None]
